FAERS Safety Report 23934248 (Version 2)
Quarter: 2024Q2

REPORT INFORMATION
  Report Type: Spontaneous
  Country: US (occurrence: US)
  Receive Date: 20240603
  Receipt Date: 20240619
  Transmission Date: 20240716
  Serious: No
  Sender: FDA-Public Use
  Company Number: US-BRISTOL-MYERS SQUIBB COMPANY-2024-089129

PATIENT
  Age: 81 Year
  Sex: Female

DRUGS (3)
  1. ELIQUIS [Suspect]
     Active Substance: APIXABAN
     Indication: Product used for unknown indication
  2. DUPIXENT [Suspect]
     Active Substance: DUPILUMAB
     Indication: Dermatitis atopic
     Route: 058
     Dates: start: 202201
  3. DUPIXENT [Suspect]
     Active Substance: DUPILUMAB
     Dosage: FREQUENCY: QOW
     Route: 058
     Dates: start: 202309

REACTIONS (11)
  - Pruritus [Recovered/Resolved]
  - Contusion [Unknown]
  - Fall [Unknown]
  - Wound complication [Unknown]
  - Limb injury [Unknown]
  - Rash [Unknown]
  - Dermatitis atopic [Unknown]
  - Eczema [Unknown]
  - Inappropriate schedule of product administration [Unknown]
  - Drug ineffective [Unknown]
  - Skin disorder [Unknown]

NARRATIVE: CASE EVENT DATE: 20220101
